FAERS Safety Report 4688507-3 (Version None)
Quarter: 2005Q2

REPORT INFORMATION
  Report Type: 
  Country: None (occurrence: None)
  Receive Date: 20050609
  Receipt Date: 20050524
  Transmission Date: 20051028
  Serious: Yes (Hospitalization)
  Sender: FDA-Public Use
  Company Number: 230010M05GBR

PATIENT
  Age: 41 Year
  Sex: Female

DRUGS (4)
  1. REBIF [Suspect]
     Dosage: SEE IMAGE
     Route: 058
     Dates: start: 20010730, end: 20020630
  2. REBIF [Suspect]
     Dosage: SEE IMAGE
     Route: 058
     Dates: start: 20020701, end: 20050201
  3. REBIF [Suspect]
     Dosage: SEE IMAGE
     Route: 058
     Dates: start: 20050401
  4. BACLOFEN [Concomitant]

REACTIONS (2)
  - ACUTE PSYCHOSIS [None]
  - BRAIN STEM SYNDROME [None]
